FAERS Safety Report 5837787-7 (Version None)
Quarter: 2008Q3

REPORT INFORMATION
  Report Type: 
  Country: None (occurrence: None)
  Receive Date: 20080806
  Receipt Date: 20080718
  Transmission Date: 20090109
  Serious: Yes (Hospitalization)
  Sender: FDA-Public Use
  Company Number: WSDF_00742

PATIENT
  Age: 79 Year
  Sex: Male
  Weight: 100 kg

DRUGS (3)
  1. WINRHO SDF [Suspect]
     Indication: THROMBOCYTOPENIC PURPURA
     Dosage: 10 UG/KG ONCE IV
     Route: 042
     Dates: start: 20080501, end: 20080501
  2. PREDNISONE TAB [Concomitant]
  3. GLUCOPHAGE [Concomitant]

REACTIONS (2)
  - ANAEMIA HAEMOLYTIC AUTOIMMUNE [None]
  - EXTRAVASCULAR HAEMOLYSIS [None]
